FAERS Safety Report 5278374-1 (Version None)
Quarter: 2007Q1

REPORT INFORMATION
  Report Type: 
  Country: None (occurrence: None)
  Receive Date: 20061213
  Receipt Date: 20050708
  Transmission Date: 20070707
  Serious: No
  Sender: FDA-Public Use
  Company Number: 2005UW10235

PATIENT
  Age: 16 Year
  Weight: 68.038 kg

DRUGS (4)
  1. SEROQUEL [Suspect]
     Indication: IMPULSE-CONTROL DISORDER
     Dosage: 100 MG BID PO
     Route: 048
  2. SEROQUEL [Suspect]
     Indication: IMPULSE-CONTROL DISORDER
     Dosage: 50 MG PRN PO
     Route: 048
  3. DEPAKOTE [Concomitant]
  4. THORAZINE [Concomitant]

REACTIONS (1)
  - CATARACT [None]
